FAERS Safety Report 18139837 (Version 3)
Quarter: 2020Q3

REPORT INFORMATION
  Report Type: Spontaneous
  Country: BR (occurrence: BR)
  Receive Date: 20200812
  Receipt Date: 20200827
  Transmission Date: 20201103
  Serious: Yes (Other)
  Sender: FDA-Public Use
  Company Number: BR-GLAXOSMITHKLINE-BR2020AMR155611

PATIENT
  Sex: Female
  Weight: 46.7 kg

DRUGS (3)
  1. AVAMYS [Suspect]
     Active Substance: FLUTICASONE FUROATE
     Indication: SINUSITIS
     Dosage: 4 DF, QD
  2. VANISTO [Suspect]
     Active Substance: UMECLIDINIUM BROMIDE
     Indication: ASTHMA
     Dosage: 1 DF, QD (1 INHALATION FOR 6 MONTHS)
  3. AVAMYS [Suspect]
     Active Substance: FLUTICASONE FUROATE
     Indication: RHINITIS

REACTIONS (14)
  - Dyspnoea [Recovering/Resolving]
  - Urinary tract disorder [Recovering/Resolving]
  - Throat irritation [Recovering/Resolving]
  - Therapeutic product effect incomplete [Unknown]
  - Urethral pain [Recovering/Resolving]
  - Dysphonia [Recovering/Resolving]
  - Product prescribing issue [Unknown]
  - Dysuria [Recovering/Resolving]
  - Dysgeusia [Recovering/Resolving]
  - Oropharyngeal discomfort [Recovering/Resolving]
  - Product use in unapproved indication [Unknown]
  - Foreign body in throat [Recovered/Resolved]
  - Female reproductive tract disorder [Recovering/Resolving]
  - Fungal pharyngitis [Not Recovered/Not Resolved]
